FAERS Safety Report 10265312 (Version 1)
Quarter: 2014Q2

REPORT INFORMATION
  Report Type: Spontaneous
  Country: US (occurrence: US)
  Receive Date: 20140627
  Receipt Date: 20140627
  Transmission Date: 20141212
  Serious: Yes (Hospitalization)
  Sender: FDA-Public Use
  Company Number: US-B.I. PHARMACEUTICALS,INC./RIDGEFIELD-2014-BI-28918BP

PATIENT
  Age: 91 Year
  Sex: Female
  Weight: 68 kg

DRUGS (1)
  1. COMBIVENT [Suspect]
     Indication: EMPHYSEMA
     Dosage: STRENGTH: 18 MCG / 103 MCG;
     Route: 055
     Dates: end: 201406

REACTIONS (2)
  - Chest pain [Recovered/Resolved]
  - Muscular weakness [Not Recovered/Not Resolved]
